FAERS Safety Report 9732617 (Version 1)
Quarter: 2013Q4

REPORT INFORMATION
  Report Type: Report from Study
  Country: US (occurrence: US)
  Receive Date: 20131205
  Receipt Date: 20131205
  Transmission Date: 20140711
  Serious: No
  Sender: FDA-Public Use
  Company Number: US-B.I. PHARMACEUTICALS,INC./RIDGEFIELD-2013-BI-39145BI

PATIENT
  Sex: Female

DRUGS (18)
  1. GILOTRIF [Suspect]
     Indication: LUNG NEOPLASM MALIGNANT
     Dosage: 40 MG
     Route: 048
     Dates: start: 20130927
  2. ICAPS AREDS FORMULA [Concomitant]
  3. NEURONTIN [Concomitant]
  4. METOPROLOL TARTRATE [Concomitant]
  5. LISINOPRIL [Concomitant]
  6. LEVOTHYROXINE [Concomitant]
  7. IMODIUM A-D [Concomitant]
     Dosage: 1 MG/7.5 ML LIQUID
  8. VCELEXA [Concomitant]
  9. SUDAFED [Concomitant]
  10. MULTIVITAMINS [Concomitant]
  11. LOPERAMIDE [Concomitant]
  12. ASPIRIN EC [Concomitant]
  13. IRON [Concomitant]
  14. FLEXERIL [Concomitant]
  15. GLUCOSAMINE + CHONDROITIN [Concomitant]
  16. OXYCODONE HCL IR [Concomitant]
  17. ULTRAM [Concomitant]
  18. EUCERIN CREME [Concomitant]

REACTIONS (1)
  - Skin infection [Unknown]
